FAERS Safety Report 7157494-0 (Version None)
Quarter: 2010Q4

REPORT INFORMATION
  Report Type: 
  Country: None (occurrence: None)
  Receive Date: 20101214
  Receipt Date: 20101206
  Transmission Date: 20110411
  Serious: Yes (Other)
  Sender: FDA-Public Use
  Company Number: ES-TEVA-259394ISR

PATIENT
  Age: 65 Year
  Sex: Male

DRUGS (3)
  1. METHOTREXATE [Suspect]
     Dates: start: 20010601, end: 20071101
  2. CORTICOSTEROID NOS [Suspect]
     Route: 042
  3. PREDNISONE [Concomitant]
     Indication: COLITIS ULCERATIVE

REACTIONS (1)
  - KAPOSI'S SARCOMA [None]
